FAERS Safety Report 6690231-2 (Version None)
Quarter: 2010Q2

REPORT INFORMATION
  Report Type: 
  Country: None (occurrence: None)
  Receive Date: 20100421
  Receipt Date: 20100409
  Transmission Date: 20101027
  Serious: Yes (Other)
  Sender: FDA-Public Use
  Company Number: US-ROCHE-666433

PATIENT
  Sex: Female

DRUGS (4)
  1. PEGASYS [Suspect]
     Indication: HEPATITIS C
     Dosage: FORM: PFS
     Route: 065
     Dates: start: 20091016
  2. PEGASYS [Suspect]
     Dosage: PATIENT IN WEEK 26 OF THERAPY
     Route: 065
     Dates: start: 20100101
  3. RIBAVIRIN [Suspect]
     Indication: HEPATITIS C
     Dosage: DIVIDED DOSES,
     Route: 048
     Dates: start: 20091016
  4. RIBAVIRIN [Suspect]
     Dosage: DIVIDED DOSES; PATIENT IN WEEK 26 OF THERAPY
     Route: 048
     Dates: start: 20100101

REACTIONS (8)
  - ARTHRALGIA [None]
  - DYSPNOEA [None]
  - FATIGUE [None]
  - GLAUCOMA [None]
  - HAEMOGLOBIN ABNORMAL [None]
  - RED BLOOD CELL COUNT DECREASED [None]
  - STOMATITIS [None]
  - WHITE BLOOD CELL COUNT DECREASED [None]
